FAERS Safety Report 16543948 (Version 1)
Quarter: 2019Q3

REPORT INFORMATION
  Report Type: Report from Study
  Country: US (occurrence: US)
  Receive Date: 20190709
  Receipt Date: 20190709
  Transmission Date: 20191004
  Serious: Yes (Other)
  Sender: FDA-Public Use
  Company Number: US-ASTELLAS-2019US027448

PATIENT
  Sex: Female

DRUGS (2)
  1. MIRABEGRON [Suspect]
     Active Substance: MIRABEGRON
     Indication: PRODUCT USED FOR UNKNOWN INDICATION
     Route: 048
     Dates: start: 2019
  2. MIRABEGRON [Suspect]
     Active Substance: MIRABEGRON
     Route: 048

REACTIONS (6)
  - Mouth swelling [Unknown]
  - Lip swelling [Unknown]
  - Drug ineffective [Unknown]
  - Dysphagia [Unknown]
  - Hypersensitivity [Unknown]
  - Pharyngeal swelling [Unknown]
